FAERS Safety Report 4289636-9 (Version None)
Quarter: 2004Q1

REPORT INFORMATION
  Report Type: 
  Country: None (occurrence: None)
  Receive Date: 20040129
  Receipt Date: 20030225
  Transmission Date: 20041129
  Serious: No
  Sender: FDA-Public Use
  Company Number: A001-002-005519

PATIENT
  Age: 81 Year
  Sex: Female
  Weight: 38.5557 kg

DRUGS (4)
  1. ARICEPT [Suspect]
     Indication: DEMENTIA ALZHEIMER'S TYPE
     Dosage: 5 MG, 1 IN 1 D, PER ORAL
     Route: 048
     Dates: start: 20021001
  2. PROPRANOLOL [Concomitant]
  3. ALTACE [Concomitant]
  4. VITAMINS (VITAMINS) [Concomitant]

REACTIONS (8)
  - ANOREXIA [None]
  - BRADYCARDIA [None]
  - DIZZINESS [None]
  - HYPERTHYROIDISM [None]
  - MUSCULAR WEAKNESS [None]
  - SLEEP DISORDER [None]
  - SYNCOPE [None]
  - WEIGHT DECREASED [None]
